FAERS Safety Report 20675108 (Version 1)
Quarter: 2022Q2

REPORT INFORMATION
  Report Type: Spontaneous
  Country: US (occurrence: US)
  Receive Date: 20220405
  Receipt Date: 20220405
  Transmission Date: 20220721
  Serious: No
  Sender: FDA-Public Use
  Company Number: US-PFIZER INC-202101150026

PATIENT
  Age: 59 Year
  Sex: Female

DRUGS (1)
  1. IBRANCE [Suspect]
     Active Substance: PALBOCICLIB
     Indication: Breast cancer female
     Dosage: 1 DF, CYCLIC, (1 DAILY FOR 21 DAYS)
     Route: 048
     Dates: start: 202102

REACTIONS (5)
  - Bone disorder [Unknown]
  - Ageusia [Unknown]
  - Abdominal pain upper [Unknown]
  - Pain [Unknown]
  - Joint stiffness [Unknown]

NARRATIVE: CASE EVENT DATE: 20210101
